APPROVED DRUG PRODUCT: RIFAMPIN
Active Ingredient: RIFAMPIN
Strength: 150MG
Dosage Form/Route: CAPSULE;ORAL
Application: A064150 | Product #002 | TE Code: AB
Applicant: EPIC PHARMA LLC
Approved: Jan 2, 1998 | RLD: No | RS: No | Type: RX